FAERS Safety Report 15339449 (Version 1)
Quarter: 2018Q3

REPORT INFORMATION
  Report Type: Report from Study
  Country: US (occurrence: US)
  Receive Date: 20180831
  Receipt Date: 20180831
  Transmission Date: 20181010
  Serious: Yes (Other)
  Sender: FDA-Public Use
  Company Number: US-MYLANLABS-2018M1064523

PATIENT
  Age: 5 Year
  Sex: Female

DRUGS (2)
  1. ACETYLCYSTEINE. [Suspect]
     Active Substance: ACETYLCYSTEINE
     Indication: ICHTHYOSIS
     Route: 061
  2. UREA. [Concomitant]
     Active Substance: UREA
     Indication: ICHTHYOSIS
     Route: 061

REACTIONS (1)
  - Ichthyosis [Unknown]
